FAERS Safety Report 7668616-7 (Version None)
Quarter: 2011Q3

REPORT INFORMATION
  Report Type: 
  Country: None (occurrence: None)
  Receive Date: 20110808
  Receipt Date: 20110808
  Transmission Date: 20111222
  Serious: Yes (Hospitalization)
  Sender: FDA-Public Use
  Company Number: None

PATIENT
  Sex: Male
  Weight: 64.863 kg

DRUGS (1)
  1. DIOVAN [Suspect]
     Indication: HYPERTENSION
     Dosage: 80MG
     Dates: start: 20110726, end: 20110726

REACTIONS (4)
  - VISUAL IMPAIRMENT [None]
  - HUNGER [None]
  - CEREBROVASCULAR ACCIDENT [None]
  - CONVULSION [None]
